FAERS Safety Report 12324917 (Version 1)
Quarter: 2016Q2

REPORT INFORMATION
  Report Type: Spontaneous
  Country: PT (occurrence: PT)
  Receive Date: 20160502
  Receipt Date: 20160502
  Transmission Date: 20160815
  Serious: Yes (Hospitalization, Other)
  Sender: FDA-Public Use
  Company Number: PT-MYLANLABS-2016M1017287

PATIENT

DRUGS (3)
  1. ANTIBIOTICS [Suspect]
     Active Substance: UNSPECIFIED INGREDIENT
     Dosage: UNK
  2. BUDESONIDE. [Suspect]
     Active Substance: BUDESONIDE
     Dosage: 9 MG, QD
  3. OLMESARTAN MEDOXOMIL. [Suspect]
     Active Substance: OLMESARTAN MEDOXOMIL
     Indication: HYPERTENSION
     Dosage: 20 MG, UNK

REACTIONS (12)
  - Hypokalaemia [Recovering/Resolving]
  - Weight decreased [Recovering/Resolving]
  - Acute kidney injury [Recovering/Resolving]
  - Mucosal atrophy [Recovering/Resolving]
  - Hypoalbuminaemia [Recovering/Resolving]
  - Normochromic normocytic anaemia [Recovering/Resolving]
  - Electrolyte imbalance [Recovering/Resolving]
  - Diarrhoea [Recovered/Resolved]
  - Hypocalcaemia [Recovering/Resolving]
  - Erythema [Recovering/Resolving]
  - Hypomagnesaemia [Recovering/Resolving]
  - Abdominal pain lower [Recovering/Resolving]
